FAERS Safety Report 19727988 (Version 1)
Quarter: 2021Q3

REPORT INFORMATION
  Report Type: Spontaneous
  Country: US (occurrence: US)
  Receive Date: 20210820
  Receipt Date: 20210820
  Transmission Date: 20211014
  Serious: Yes (Other)
  Sender: FDA-Public Use
  Company Number: US-GLAXOSMITHKLINE-US2021AMR171413

PATIENT
  Sex: Female

DRUGS (3)
  1. VITAMINS C+E [Concomitant]
     Indication: PRODUCT USED FOR UNKNOWN INDICATION
     Dosage: UNK
  2. DOXYCYCLINE. [Concomitant]
     Active Substance: DOXYCYCLINE
     Indication: PRODUCT USED FOR UNKNOWN INDICATION
     Dosage: UNK
  3. ZEJULA [Suspect]
     Active Substance: NIRAPARIB
     Indication: OVARIAN CANCER
     Dosage: 200 MG, QD
     Route: 048
     Dates: start: 20191114

REACTIONS (5)
  - Blood pressure increased [Unknown]
  - Wound necrosis [Recovering/Resolving]
  - Blood potassium decreased [Unknown]
  - Impaired healing [Recovering/Resolving]
  - Back injury [Recovering/Resolving]
